FAERS Safety Report 20933715 (Version 1)
Quarter: 2022Q2

REPORT INFORMATION
  Report Type: Spontaneous
  Country: GB (occurrence: IE)
  Receive Date: 20220608
  Receipt Date: 20220608
  Transmission Date: 20220721
  Serious: Yes (Death, Other)
  Sender: FDA-Public Use
  Company Number: GB-BRISTOL-MYERS SQUIBB COMPANY-2022-054343

PATIENT
  Age: 74 Year
  Sex: Male

DRUGS (51)
  1. REVLIMID [Suspect]
     Active Substance: LENALIDOMIDE
     Indication: Plasma cell myeloma
     Dosage: 15 MILLIGRAM, QD
  2. REVLIMID [Suspect]
     Active Substance: LENALIDOMIDE
     Dosage: UNK; ;
     Route: 048
     Dates: start: 20181210
  3. REVLIMID [Suspect]
     Active Substance: LENALIDOMIDE
     Dosage: 4 MILLIGRAM, 1/WEEK
     Route: 065
     Dates: start: 20190629
  4. REVLIMID [Suspect]
     Active Substance: LENALIDOMIDE
     Dosage: 25 MILLIGRAM, QD
     Route: 048
     Dates: start: 20190906, end: 20191010
  5. REVLIMID [Suspect]
     Active Substance: LENALIDOMIDE
     Dosage: 25 MILLIGRAM, QD
     Route: 048
     Dates: start: 20190906, end: 20191231
  6. REVLIMID [Suspect]
     Active Substance: LENALIDOMIDE
     Dosage: UNK; ;
     Route: 048
  7. REVLIMID [Suspect]
     Active Substance: LENALIDOMIDE
     Dosage: 25 MILLIGRAM, QD
     Route: 048
     Dates: start: 20181112, end: 20181202
  8. REVLIMID [Suspect]
     Active Substance: LENALIDOMIDE
     Dosage: 25 MILLIGRAM, QD
     Route: 048
     Dates: start: 20191112, end: 20191202
  9. REVLIMID [Suspect]
     Active Substance: LENALIDOMIDE
     Dosage: 25 MILLIGRAM, QD
     Route: 048
     Dates: start: 20191210
  10. REVLIMID [Suspect]
     Active Substance: LENALIDOMIDE
     Dosage: 25 MILLIGRAM, QD
     Route: 048
     Dates: start: 20191213, end: 20191231
  11. REVLIMID [Suspect]
     Active Substance: LENALIDOMIDE
     Dosage: 25 MILLIGRAM, QD
     Route: 048
     Dates: start: 20190614, end: 20190704
  12. REVLIMID [Suspect]
     Active Substance: LENALIDOMIDE
     Dosage: UNK; ;
     Route: 048
  13. REVLIMID [Suspect]
     Active Substance: LENALIDOMIDE
     Dosage: UNK; ;
     Route: 048
     Dates: start: 20191231
  14. REVLIMID [Suspect]
     Active Substance: LENALIDOMIDE
     Dosage: 300 MILLIGRAM, 1/WEEK
     Route: 065
     Dates: start: 20191213
  15. REVLIMID [Suspect]
     Active Substance: LENALIDOMIDE
     Dosage: 25 MILLIGRAM, QD
     Route: 048
     Dates: start: 20190809, end: 20190829
  16. REVLIMID [Suspect]
     Active Substance: LENALIDOMIDE
     Dosage: 25 MILLIGRAM, QD
     Route: 048
     Dates: start: 20190712, end: 20190801
  17. REVLIMID [Suspect]
     Active Substance: LENALIDOMIDE
     Dosage: 25 MILLIGRAM, QD
     Route: 048
     Dates: start: 20180917, end: 20181007
  18. REVLIMID [Suspect]
     Active Substance: LENALIDOMIDE
     Dosage: 25 MILLIGRAM, QD
     Route: 048
     Dates: start: 20181015, end: 20181104
  19. REVLIMID [Suspect]
     Active Substance: LENALIDOMIDE
     Dosage: UNK; ;
     Route: 048
  20. REVLIMID [Suspect]
     Active Substance: LENALIDOMIDE
     Dosage: 25 MILLIGRAM, QD
     Route: 048
     Dates: start: 20181210, end: 20181231
  21. REVLIMID [Suspect]
     Active Substance: LENALIDOMIDE
     Dosage: 25 MILLIGRAM, QD
     Route: 048
     Dates: start: 20180821, end: 20180909
  22. MEGACE [Concomitant]
     Active Substance: MEGESTROL ACETATE
     Indication: Malnutrition
     Dosage: 7.5 MILLILITER, BID
     Route: 048
     Dates: start: 20191011
  23. MEGACE [Concomitant]
     Active Substance: MEGESTROL ACETATE
     Dosage: 15 MILLILITER, QD
     Route: 048
     Dates: start: 20191019
  24. CHOLECALCIFEROL [Concomitant]
     Active Substance: CHOLECALCIFEROL
     Indication: Product used for unknown indication
     Dosage: UNK
     Route: 065
  25. LEVEMIR [Concomitant]
     Active Substance: INSULIN DETEMIR
     Indication: Product used for unknown indication
     Dosage: UNK
     Route: 065
  26. METHOTREXATE SODIUM [Concomitant]
     Active Substance: METHOTREXATE SODIUM
     Indication: Blood pressure abnormal
     Dosage: UNK
     Route: 065
  27. NOVORAPID [Concomitant]
     Active Substance: INSULIN ASPART
     Indication: Product used for unknown indication
     Dosage: UNK
     Route: 065
  28. NINLARO [Concomitant]
     Active Substance: IXAZOMIB CITRATE
     Indication: Product used for unknown indication
     Dosage: 2.3 MILLIGRAM, 1/WEEK
  29. NINLARO [Concomitant]
     Active Substance: IXAZOMIB CITRATE
     Dosage: 4 MILLIGRAM;
  30. DEXAMETHASONE [Concomitant]
     Active Substance: DEXAMETHASONE
     Indication: Product used for unknown indication
  31. DEXAMETHASONE [Concomitant]
     Active Substance: DEXAMETHASONE
     Dates: start: 20190614, end: 20190830
  32. METOCLOPRAMIDE HYDROCHLORIDE [Concomitant]
     Active Substance: METOCLOPRAMIDE HYDROCHLORIDE
     Indication: Product used for unknown indication
  33. CALCIUM\CHOLECALCIFEROL [Concomitant]
     Active Substance: CALCIUM\CHOLECALCIFEROL
     Indication: Prophylaxis
     Dosage: 4 DOSAGE FORM, BID
     Route: 048
     Dates: start: 20190103, end: 20191011
  34. CALCIUM\CHOLECALCIFEROL [Concomitant]
     Active Substance: CALCIUM\CHOLECALCIFEROL
     Dosage: UNK UNK, BID;
     Route: 048
     Dates: start: 20190212, end: 20191015
  35. CALCIUM\CHOLECALCIFEROL [Concomitant]
     Active Substance: CALCIUM\CHOLECALCIFEROL
     Dosage: UNK UNK, QD;
     Route: 048
     Dates: start: 20191016, end: 20191029
  36. CALCIUM\CHOLECALCIFEROL [Concomitant]
     Active Substance: CALCIUM\CHOLECALCIFEROL
     Dosage: UNK UNK, QD;
     Route: 048
     Dates: start: 20190103, end: 20190211
  37. VITAMINS [Concomitant]
     Active Substance: VITAMINS
     Indication: Prophylaxis
     Dosage: UNK UNK, QD;
     Route: 048
     Dates: start: 20190104
  38. COTRIMOXAZOLE [Concomitant]
     Active Substance: SULFAMETHOXAZOLE\TRIMETHOPRIM
     Indication: Antifungal prophylaxis
     Dosage: 480 MILLIGRAM, QD
     Route: 048
     Dates: start: 20180817, end: 20191015
  39. TRIPTORELIN [Concomitant]
     Active Substance: TRIPTORELIN
     Indication: Prostate cancer
     Dosage: 45 MILLIGRAM;
     Route: 065
     Dates: start: 20190515
  40. CARBOHYDRATES\FATTY ACIDS\MINERALS\PROTEIN\VITAMINS [Concomitant]
     Active Substance: CARBOHYDRATES\FATTY ACIDS\MINERALS\PROTEIN\VITAMINS
     Indication: Malnutrition
     Dosage: UNK, QD;
     Route: 048
     Dates: start: 20190102, end: 20191029
  41. CARBOHYDRATES\FATTY ACIDS\MINERALS\PROTEIN\VITAMINS [Concomitant]
     Active Substance: CARBOHYDRATES\FATTY ACIDS\MINERALS\PROTEIN\VITAMINS
     Dosage: UNK, BID;
     Route: 048
     Dates: start: 20190103, end: 20191011
  42. MYCOSTATIN [Concomitant]
     Active Substance: NYSTATIN
     Indication: Tongue coated
     Dosage: 3 MILLILITER, QD
     Route: 048
     Dates: start: 20191116, end: 20191220
  43. MYCOSTATIN [Concomitant]
     Active Substance: NYSTATIN
     Indication: Tongue coated
     Dosage: UNK; ;
     Route: 048
  44. MYCOSTATIN [Concomitant]
     Active Substance: NYSTATIN
     Indication: Tongue coated
     Dosage: UNK; ;
     Route: 048
     Dates: start: 20190104
  45. MYCOSTATIN [Concomitant]
     Active Substance: NYSTATIN
     Indication: Tongue coated
     Dosage: 9 MILLILITER, QD
     Route: 048
     Dates: start: 20191116, end: 20191220
  46. SULFAMETHOXAZOLE\TRIMETHOPRIM [Concomitant]
     Active Substance: SULFAMETHOXAZOLE\TRIMETHOPRIM
     Indication: Prophylaxis
     Dosage: 10 MILLILITER, QD
     Route: 048
     Dates: start: 20191011
  47. SULFAMETHOXAZOLE\TRIMETHOPRIM [Concomitant]
     Active Substance: SULFAMETHOXAZOLE\TRIMETHOPRIM
     Indication: Prophylaxis
     Dosage: 20 MILLILITER, QD
     Route: 048
     Dates: start: 20190102, end: 20191015
  48. VITAMINS NOS [Concomitant]
     Active Substance: VITAMINS
     Indication: Malnutrition
     Dosage: UNK UNK, QD;
     Route: 065
     Dates: start: 20190102, end: 20190129
  49. VITAMINS NOS [Concomitant]
     Active Substance: VITAMINS
     Dosage: UNK, QD;
     Route: 048
     Dates: start: 20190104
  50. VITAMINS NOS [Concomitant]
     Active Substance: VITAMINS
     Dosage: UNK, QD;
     Route: 048
     Dates: start: 20190103, end: 20191111
  51. AB ACICLOVIR [ACICLOVIR] [Concomitant]
     Indication: Product used for unknown indication

REACTIONS (1)
  - Death [Fatal]
